FAERS Safety Report 11250553 (Version 1)
Quarter: 2015Q3

REPORT INFORMATION
  Report Type: Report from Study
  Country: JP (occurrence: JP)
  Receive Date: 20150708
  Receipt Date: 20150708
  Transmission Date: 20151125
  Serious: Yes (Life-Threatening)
  Sender: FDA-Public Use
  Company Number: JP-CELGENE-JPN-2015071040

PATIENT
  Age: 74 Year
  Sex: Male
  Weight: 66 kg

DRUGS (27)
  1. MAXIPIME [Concomitant]
     Active Substance: CEFEPIME HYDROCHLORIDE
     Route: 065
     Dates: end: 20121208
  2. ITRIZOLE [Concomitant]
     Active Substance: ITRACONAZOLE
     Indication: PRODUCT USED FOR UNKNOWN INDICATION
     Route: 065
     Dates: start: 20120508
  3. VIDAZA [Suspect]
     Active Substance: AZACITIDINE
     Indication: MYELODYSPLASTIC SYNDROME
     Route: 041
     Dates: start: 20120508, end: 20120514
  4. VIDAZA [Suspect]
     Active Substance: AZACITIDINE
     Route: 041
     Dates: start: 20121110, end: 20121114
  5. AZUNOL [Concomitant]
     Active Substance: SODIUM GUALENATE
     Indication: PRODUCT USED FOR UNKNOWN INDICATION
     Route: 065
     Dates: start: 20120811, end: 20121125
  6. KYTRIL [Concomitant]
     Active Substance: GRANISETRON HYDROCHLORIDE
     Route: 065
     Dates: start: 20120613, end: 20120619
  7. POLARAMINE [Concomitant]
     Active Substance: DEXCHLORPHENIRAMINE MALEATE
     Route: 065
  8. CRAVIT [Concomitant]
     Active Substance: LEVOFLOXACIN
     Indication: PRODUCT USED FOR UNKNOWN INDICATION
     Route: 065
     Dates: start: 20120427
  9. VIDAZA [Suspect]
     Active Substance: AZACITIDINE
     Route: 041
     Dates: start: 20120910, end: 20120916
  10. OMEPROL [Concomitant]
     Active Substance: OMEPRAZOLE
     Indication: PRODUCT USED FOR UNKNOWN INDICATION
     Route: 065
     Dates: start: 20120517
  11. AMLODIN [Concomitant]
     Active Substance: AMLODIPINE BESYLATE
     Indication: PRODUCT USED FOR UNKNOWN INDICATION
     Route: 065
  12. MYSLEE [Concomitant]
     Active Substance: ZOLPIDEM TARTRATE
     Indication: PRODUCT USED FOR UNKNOWN INDICATION
     Route: 065
  13. PURSENNID [Concomitant]
     Active Substance: SENNOSIDES A AND B
     Indication: PRODUCT USED FOR UNKNOWN INDICATION
     Route: 065
     Dates: start: 20120730, end: 20120804
  14. VIDAZA [Suspect]
     Active Substance: AZACITIDINE
     Route: 041
     Dates: start: 20120721, end: 20120727
  15. MAGMITT [Concomitant]
     Active Substance: MAGNESIUM OXIDE
     Indication: PRODUCT USED FOR UNKNOWN INDICATION
     Route: 065
     Dates: start: 20120730, end: 20120804
  16. POLARAMINE [Concomitant]
     Active Substance: DEXCHLORPHENIRAMINE MALEATE
     Indication: PRODUCT USED FOR UNKNOWN INDICATION
     Route: 065
  17. VIDAZA [Suspect]
     Active Substance: AZACITIDINE
     Route: 041
     Dates: start: 20130112, end: 20130118
  18. MAXIPIME [Concomitant]
     Active Substance: CEFEPIME HYDROCHLORIDE
     Indication: PRODUCT USED FOR UNKNOWN INDICATION
     Route: 065
     Dates: start: 20120613, end: 20120626
  19. LIPITOR [Concomitant]
     Active Substance: ATORVASTATIN CALCIUM
     Indication: PRODUCT USED FOR UNKNOWN INDICATION
     Route: 065
  20. LASIX [Concomitant]
     Active Substance: FUROSEMIDE
     Indication: PRODUCT USED FOR UNKNOWN INDICATION
     Route: 065
  21. KYTRIL [Concomitant]
     Active Substance: GRANISETRON HYDROCHLORIDE
     Indication: PRODUCT USED FOR UNKNOWN INDICATION
     Route: 065
     Dates: start: 20120508, end: 20120514
  22. BAYASPIRIN [Concomitant]
     Active Substance: ASPIRIN
     Indication: PRODUCT USED FOR UNKNOWN INDICATION
     Route: 065
  23. PLETAAL [Concomitant]
     Active Substance: CILOSTAZOL
     Indication: PRODUCT USED FOR UNKNOWN INDICATION
     Route: 065
  24. CRAVIT [Concomitant]
     Active Substance: LEVOFLOXACIN
     Route: 065
  25. SLOW-K [Concomitant]
     Active Substance: POTASSIUM CHLORIDE
     Indication: PRODUCT USED FOR UNKNOWN INDICATION
     Route: 065
     Dates: start: 20120821, end: 20121208
  26. VIDAZA [Suspect]
     Active Substance: AZACITIDINE
     Route: 041
     Dates: start: 20120613, end: 20120619
  27. KYTRIL [Concomitant]
     Active Substance: GRANISETRON HYDROCHLORIDE
     Route: 065
     Dates: end: 20130118

REACTIONS (2)
  - Febrile neutropenia [Recovered/Resolved]
  - Febrile neutropenia [Recovered/Resolved]

NARRATIVE: CASE EVENT DATE: 20120917
